FAERS Safety Report 8513671-5 (Version None)
Quarter: 2012Q3

REPORT INFORMATION
  Report Type: 
  Country: None (occurrence: None)
  Receive Date: 20120717
  Receipt Date: 20120711
  Transmission Date: 20120928
  Serious: Yes (Death)
  Sender: FDA-Public Use
  Company Number: JP-ELI_LILLY_AND_COMPANY-JP201207003451

PATIENT
  Age: 75 Year

DRUGS (4)
  1. GEMZAR [Suspect]
     Indication: BILE DUCT CANCER
     Dosage: 1000 MG, UNK
     Dates: start: 20110708, end: 20120420
  2. GRANISETRON [Concomitant]
     Dosage: 3 MG, UNK
  3. TS 1 [Concomitant]
     Indication: BILE DUCT CANCER
     Dosage: 80 MG, UNK
     Dates: start: 20110708, end: 20120420
  4. DECADRON [Concomitant]
     Dosage: 8 MG, UNK

REACTIONS (1)
  - DEATH [None]
